FAERS Safety Report 14383469 (Version 1)
Quarter: 2018Q1

REPORT INFORMATION
  Report Type: Report from Study
  Country: CA (occurrence: CA)
  Receive Date: 20180115
  Receipt Date: 20180115
  Transmission Date: 20180509
  Serious: Yes (Hospitalization, Other)
  Sender: FDA-Public Use
  Company Number: CA-AMGEN-CANSL2018002801

PATIENT
  Age: 87 Year
  Sex: Male

DRUGS (1)
  1. XGEVA [Suspect]
     Active Substance: DENOSUMAB
     Indication: PROSTATE CANCER
     Dosage: 120 MG (IN 1.70 ML), UNK
     Route: 065
     Dates: start: 20161011

REACTIONS (4)
  - Pharyngeal haemorrhage [Recovered/Resolved]
  - Urinary tract infection [Recovered/Resolved]
  - Skin discolouration [Unknown]
  - Epistaxis [Recovered/Resolved]
